FAERS Safety Report 9486528 (Version 2)
Quarter: 2013Q4

REPORT INFORMATION
  Report Type: Spontaneous
  Country: US (occurrence: US)
  Receive Date: 20130829
  Receipt Date: 20131021
  Transmission Date: 20140711
  Serious: Yes (Other)
  Sender: FDA-Public Use
  Company Number: US-SANOFI-AVENTIS-2013SA085738

PATIENT
  Age: 74 Year
  Sex: Male
  Weight: 92 kg

DRUGS (2)
  1. LANTUS SOLOSTAR [Suspect]
     Indication: TYPE 2 DIABETES MELLITUS
     Dosage: STARTED 5 YEAR AGO DOSE:18 UNIT(S)
     Route: 058
  2. SOLOSTAR [Concomitant]
     Indication: DIABETES MELLITUS

REACTIONS (4)
  - Eye disorder [Recovered/Resolved]
  - Vision blurred [Recovered/Resolved]
  - Cataract [Recovered/Resolved]
  - Blood glucose increased [Unknown]
